FAERS Safety Report 12865258 (Version 1)
Quarter: 2016Q4

REPORT INFORMATION
  Report Type: Spontaneous
  Country: DK (occurrence: DK)
  Receive Date: 20161020
  Receipt Date: 20161020
  Transmission Date: 20170207
  Serious: Yes (Hospitalization)
  Sender: FDA-Public Use
  Company Number: DK-TEVA-701290ACC

PATIENT
  Age: 27 Year
  Sex: Female

DRUGS (3)
  1. LAMOTRIGIN ^ACTAVIS^ [Suspect]
     Active Substance: LAMOTRIGINE
     Indication: MOOD SWINGS
     Dosage: 200 MILLIGRAM DAILY; STRENGTH: 100 MG.
     Route: 048
     Dates: end: 201410
  2. SEROQUEL [Suspect]
     Active Substance: QUETIAPINE FUMARATE
     Indication: MENTAL DISORDER
     Route: 048
     Dates: end: 201506
  3. DEPO-PROVERA [Concomitant]
     Active Substance: MEDROXYPROGESTERONE ACETATE

REACTIONS (8)
  - Chest discomfort [Recovering/Resolving]
  - Weight decreased [Unknown]
  - Alveolitis allergic [Unknown]
  - Coagulation factor VIII level increased [Unknown]
  - Pulmonary embolism [Unknown]
  - Dyspnoea [Recovering/Resolving]
  - Oxygen supplementation [Recovered/Resolved]
  - Interstitial lung disease [Unknown]

NARRATIVE: CASE EVENT DATE: 201303
